FAERS Safety Report 6134480-0 (Version None)
Quarter: 2009Q1

REPORT INFORMATION
  Report Type: 
  Country: None (occurrence: None)
  Receive Date: 20090327
  Receipt Date: 20090324
  Transmission Date: 20090719
  Serious: Yes (Hospitalization, Other)
  Sender: FDA-Public Use
  Company Number: FR-PFIZER INC-2009188165

PATIENT

DRUGS (9)
  1. ATORVASTATIN CALCIUM [Suspect]
     Dosage: UNK
     Route: 048
     Dates: start: 20040101, end: 20081101
  2. KARDEGIC [Concomitant]
     Dosage: UNK
  3. VALSARTAN [Concomitant]
     Dosage: UNK
  4. GLIMEPIRIDE [Concomitant]
     Dosage: UNK
     Dates: end: 20080801
  5. METFORMIN [Concomitant]
     Dosage: UNK
  6. LAMALINE [Concomitant]
     Dosage: UNK
     Dates: start: 20070101, end: 20081201
  7. ESCITALOPRAM OXALATE [Concomitant]
     Dosage: UNK
     Dates: start: 20080701, end: 20081201
  8. NEBIVOLOL [Concomitant]
     Dosage: UNK
     Dates: start: 20080601
  9. CARVEDILOL [Concomitant]
     Dosage: UNK
     Dates: end: 20080301

REACTIONS (3)
  - ACUTE PULMONARY OEDEMA [None]
  - LUNG DISORDER [None]
  - PULMONARY FIBROSIS [None]
